FAERS Safety Report 21527529 (Version 1)
Quarter: 2022Q4

REPORT INFORMATION
  Report Type: Report from Study
  Country: CA (occurrence: CA)
  Receive Date: 20221031
  Receipt Date: 20221031
  Transmission Date: 20230113
  Serious: Yes (Other)
  Sender: FDA-Public Use
  Company Number: None

PATIENT
  Age: 17 Year
  Sex: Female

DRUGS (4)
  1. METHOTREXATE [Suspect]
     Active Substance: METHOTREXATE
     Indication: Tubulointerstitial nephritis and uveitis syndrome
     Route: 065
  2. AMOXICILLIN [Suspect]
     Active Substance: AMOXICILLIN
     Indication: Hypersensitivity
     Route: 065
  3. CEFZIL [Concomitant]
     Active Substance: CEFPROZIL
     Route: 065
  4. RUPATADINE FUMARATE [Concomitant]
     Active Substance: RUPATADINE FUMARATE
     Dosage: 2 EVERY 1 DAYS
     Route: 065

REACTIONS (8)
  - Anaphylactic reaction [Unknown]
  - Angioedema [Unknown]
  - Headache [Unknown]
  - Idiopathic urticaria [Unknown]
  - Serum sickness [Unknown]
  - Tubulointerstitial nephritis and uveitis syndrome [Unknown]
  - Urticaria [Unknown]
  - Condition aggravated [Unknown]
